FAERS Safety Report 6136808-4 (Version None)
Quarter: 2009Q1

REPORT INFORMATION
  Report Type: 
  Country: None (occurrence: None)
  Receive Date: 20090325
  Receipt Date: 20090325
  Transmission Date: 20090719
  Serious: Yes (Life-Threatening)
  Sender: FDA-Public Use
  Company Number: None

PATIENT
  Sex: Female
  Weight: 64.4108 kg

DRUGS (12)
  1. EPOGEN [Suspect]
     Indication: ANAEMIA
     Dosage: 7500 U QW SC (057)
     Dates: start: 20090316, end: 20090317
  2. GLIPIZIDE [Concomitant]
  3. FUROSEMIDE [Concomitant]
  4. AVANDIA [Concomitant]
  5. ASPIRIN [Concomitant]
  6. SIMCOR [Concomitant]
  7. PLAVIX [Concomitant]
  8. COREG [Concomitant]
  9. EXFORGE [Concomitant]
  10. LANTUS [Concomitant]
  11. PRILOSEC [Concomitant]
  12. LORATADINE-MCD [Concomitant]

REACTIONS (1)
  - HYPERKALAEMIA [None]
